FAERS Safety Report 7471997-0 (Version None)
Quarter: 2011Q2

REPORT INFORMATION
  Report Type: 
  Country: None (occurrence: None)
  Receive Date: 20110511
  Receipt Date: 20100908
  Transmission Date: 20111010
  Serious: No
  Sender: FDA-Public Use
  Company Number: A0880690A

PATIENT
  Age: 45 Year
  Sex: Female
  Weight: 75 kg

DRUGS (1)
  1. TYKERB [Suspect]
     Dosage: 1500MGD PER DAY
     Route: 048
     Dates: start: 20100715

REACTIONS (1)
  - RASH [None]
